FAERS Safety Report 8613441-3 (Version None)
Quarter: 2012Q3

REPORT INFORMATION
  Report Type: 
  Country: None (occurrence: None)
  Receive Date: 20120822
  Receipt Date: 20120807
  Transmission Date: 20120928
  Serious: Yes (Life-Threatening, Hospitalization)
  Sender: FDA-Public Use
  Company Number: US-009507513-1208USA003499

PATIENT

DRUGS (2)
  1. ZOLINZA [Suspect]
     Indication: GLIOBLASTOMA MULTIFORME
     Dosage: 300 MG, ON DAYS 1-5 WEEKLY
     Route: 048
     Dates: start: 20120716, end: 20120802
  2. TEMOZOLOMIDE [Suspect]
     Indication: GLIOBLASTOMA MULTIFORME
     Dosage: 75 MG/M2, QD
     Route: 048
     Dates: start: 20120716, end: 20120802

REACTIONS (1)
  - EMBOLISM [None]
